FAERS Safety Report 25915986 (Version 3)
Quarter: 2025Q4

REPORT INFORMATION
  Report Type: Report from Study
  Country: US (occurrence: US)
  Receive Date: 20251013
  Receipt Date: 20251129
  Transmission Date: 20260117
  Serious: No
  Sender: ABBVIE
  Company Number: US-ABBVIE-6499032

PATIENT
  Age: 51 Year
  Sex: Female
  Weight: 74.389 kg

DRUGS (3)
  1. VYALEV [Suspect]
     Active Substance: FOSCARBIDOPA\FOSLEVODOPA
     Indication: Parkinson^s disease
     Dosage: 24 HOUR INFUSION
     Route: 058
     Dates: start: 20241105
  2. PRISTIQ EXTENDED-RELEASE [Concomitant]
     Active Substance: DESVENLAFAXINE SUCCINATE
     Indication: Product used for unknown indication
  3. GOCOVRI [Concomitant]
     Active Substance: AMANTADINE
     Indication: Product used for unknown indication

REACTIONS (3)
  - Infusion site irritation [Recovered/Resolved]
  - Infusion site cellulitis [Recovered/Resolved]
  - Infusion site hyperaesthesia [Recovered/Resolved]

NARRATIVE: CASE EVENT DATE: 20251022
